FAERS Safety Report 9372065 (Version 1)
Quarter: 2013Q2

REPORT INFORMATION
  Report Type: Spontaneous
  Country: US (occurrence: US)
  Receive Date: 20130627
  Receipt Date: 20130627
  Transmission Date: 20140414
  Serious: No
  Sender: FDA-Public Use
  Company Number: US-BAYER-2013-076307

PATIENT
  Age: 29 Year
  Sex: Female
  Weight: 93.42 kg

DRUGS (2)
  1. MIDOL EXTENDED RELIEF CAPLET [Suspect]
     Indication: MOOD SWINGS
     Dosage: UNK
     Route: 048
     Dates: start: 20130612, end: 20130613
  2. MIDOL EXTENDED RELIEF CAPLET [Suspect]
     Indication: ABDOMINAL DISTENSION

REACTIONS (4)
  - Drug ineffective [None]
  - Incorrect dose administered [None]
  - Incorrect dose administered [None]
  - Off label use [None]
